FAERS Safety Report 11577602 (Version 2)
Quarter: 2015Q4

REPORT INFORMATION
  Report Type: Spontaneous
  Country: JP (occurrence: JP)
  Receive Date: 20150930
  Receipt Date: 20151105
  Transmission Date: 20160304
  Serious: Yes (Death)
  Sender: FDA-Public Use
  Company Number: JP-MALLINCKRODT-T201504515

PATIENT
  Age: 56 Year
  Sex: Male

DRUGS (11)
  1. TOUCHRON [Concomitant]
     Indication: ANALGESIC THERAPY
     Dosage: 1 DF
     Route: 061
     Dates: end: 20150825
  2. NEXIUM [Concomitant]
     Active Substance: ESOMEPRAZOLE MAGNESIUM
     Dosage: 20 MG
     Route: 048
     Dates: end: 20150825
  3. METHADONE [Suspect]
     Active Substance: METHADONE HYDROCHLORIDE
     Dosage: 10 MG, (20 MG DAILY DOSE)
     Route: 048
     Dates: start: 20150725, end: 20150816
  4. LOXOPROFEN [Concomitant]
     Active Substance: LOXOPROFEN
     Indication: ANALGESIC THERAPY
     Dosage: 180 MG
     Route: 048
     Dates: end: 20150825
  5. OXINORM [Suspect]
     Active Substance: OXYCODONE HYDROCHLORIDE
     Indication: BREAKTHROUGH PAIN
     Dosage: UNK
     Route: 048
     Dates: start: 20150720
  6. MAGMITT [Concomitant]
     Active Substance: MAGNESIUM OXIDE
     Dosage: 990 MG
     Route: 048
     Dates: start: 20150722, end: 20150825
  7. LYRICA [Concomitant]
     Active Substance: PREGABALIN
     Indication: ANALGESIC THERAPY
     Dosage: 75 MG
     Route: 048
     Dates: end: 20150725
  8. METHADONE [Suspect]
     Active Substance: METHADONE HYDROCHLORIDE
     Dosage: 10 MG, (40 MG DAILY DOSE)
     Route: 048
     Dates: start: 20150817, end: 20150824
  9. METHADONE [Suspect]
     Active Substance: METHADONE HYDROCHLORIDE
     Dosage: 15 MG, (45 MG DAILY DOSE)
     Route: 048
     Dates: start: 20150824, end: 20150825
  10. METHADONE [Suspect]
     Active Substance: METHADONE HYDROCHLORIDE
     Indication: CANCER PAIN
     Dosage: 10 MG, (30 MG DAILY DOSE)
     Route: 048
     Dates: start: 20150721, end: 20150725
  11. QUETIAPINE [Concomitant]
     Active Substance: QUETIAPINE
     Dosage: 50 MG
     Route: 048
     Dates: end: 20150825

REACTIONS (3)
  - Respiratory depression [Recovered/Resolved]
  - Somnolence [Recovered/Resolved]
  - Thymoma malignant [Fatal]

NARRATIVE: CASE EVENT DATE: 20150725
